FAERS Safety Report 6989017-0 (Version None)
Quarter: 2010Q3

REPORT INFORMATION
  Report Type: 
  Country: None (occurrence: None)
  Receive Date: 20100916
  Receipt Date: 20091002
  Transmission Date: 20110219
  Serious: Yes (Other)
  Sender: FDA-Public Use
  Company Number: US-PFIZER INC-2009207414

PATIENT
  Sex: Male
  Weight: 76.19 kg

DRUGS (2)
  1. LYRICA [Suspect]
     Indication: NEUROPATHY PERIPHERAL
     Dosage: UNK
  2. NEURONTIN [Concomitant]
     Dosage: 800 MG, 3X/DAY

REACTIONS (3)
  - ARTHRITIS [None]
  - MENISCUS LESION [None]
  - VISION BLURRED [None]
